FAERS Safety Report 10641133 (Version 3)
Quarter: 2019Q2

REPORT INFORMATION
  Report Type: Spontaneous
  Country: JP (occurrence: JP)
  Receive Date: 20141209
  Receipt Date: 20190627
  Transmission Date: 20190711
  Serious: Yes (Hospitalization)
  Sender: FDA-Public Use
  Company Number: JP-DSJP-DSJ-2014-131120

PATIENT
  Age: 52 Year
  Sex: Female
  Weight: 56 kg

DRUGS (6)
  1. COENZYME Q10 [Suspect]
     Active Substance: UBIDECARENONE
     Dosage: UNK
     Route: 048
  2. CALBLOCK [Suspect]
     Active Substance: AZELNIDIPINE
     Indication: HYPERTENSION
     Dosage: 8MG/DAY
     Route: 048
  3. ZOLPIDEM TARTRATE. [Concomitant]
     Active Substance: ZOLPIDEM TARTRATE
     Dosage: 5MG/DAY
     Route: 048
  4. OLMETEC [Suspect]
     Active Substance: OLMESARTAN MEDOXOMIL
     Indication: HYPERTENSION
     Dosage: 40MG/DAY
     Route: 048
  5. LOXONIN [Concomitant]
     Active Substance: LOXOPROFEN SODIUM
     Indication: HEADACHE
     Dosage: 60MG/DAY
     Route: 048
  6. LANSOPRAZOLE. [Concomitant]
     Active Substance: LANSOPRAZOLE
     Dosage: 15MG/DAY
     Route: 048

REACTIONS (1)
  - Insulin autoimmune syndrome [Recovering/Resolving]
